FAERS Safety Report 26022702 (Version 2)
Quarter: 2025Q4

REPORT INFORMATION
  Report Type: Spontaneous
  Country: US (occurrence: US)
  Receive Date: 20251110
  Receipt Date: 20251205
  Transmission Date: 20260117
  Serious: No
  Sender: MYLAN
  Company Number: US-MYLANLABS-2025M1092852

PATIENT
  Sex: Female
  Weight: 38.29 kg

DRUGS (1)
  1. CYCLOSPORINE [Suspect]
     Active Substance: CYCLOSPORINE
     Indication: Dry eye
     Dosage: 1 GTT DROPS, BID (1 DROP TWICE A DAY, 12 HOURS APART)
     Dates: start: 20250923

REACTIONS (6)
  - Illness [Unknown]
  - Heart rate irregular [Unknown]
  - Feeling abnormal [Unknown]
  - Eye pain [Unknown]
  - Vision blurred [Unknown]
  - Eye irritation [Unknown]

NARRATIVE: CASE EVENT DATE: 20250101
